FAERS Safety Report 7571733-3 (Version None)
Quarter: 2011Q2

REPORT INFORMATION
  Report Type: 
  Country: None (occurrence: None)
  Receive Date: 20110624
  Receipt Date: 20110623
  Transmission Date: 20111010
  Serious: Yes (Life-Threatening, Hospitalization, Other)
  Sender: FDA-Public Use
  Company Number: JP-PFIZER INC-2011128094

PATIENT
  Age: 69 Year
  Sex: Male

DRUGS (3)
  1. CELECOXIB [Suspect]
     Dosage: 200 MG /DAY
     Route: 048
  2. LOXONIN [Suspect]
     Dosage: 90 MG/DAY
     Route: 048
  3. LYRICA [Suspect]
     Dosage: 150 MG/DAY
     Route: 048

REACTIONS (4)
  - SINUS ARREST [None]
  - RENAL FAILURE ACUTE [None]
  - LOSS OF CONSCIOUSNESS [None]
  - ACIDOSIS [None]
